FAERS Safety Report 8304709-9 (Version None)
Quarter: 2012Q2

REPORT INFORMATION
  Report Type: 
  Country: None (occurrence: None)
  Receive Date: 20120423
  Receipt Date: 20120409
  Transmission Date: 20120825
  Serious: Yes (Hospitalization)
  Sender: FDA-Public Use
  Company Number: US-ROCHE-1049827

PATIENT
  Sex: Female
  Weight: 62.198 kg

DRUGS (1)
  1. XELODA [Suspect]
     Indication: BREAST CANCER METASTATIC
     Route: 048
     Dates: start: 20120131, end: 20120210

REACTIONS (7)
  - NAUSEA [None]
  - DEHYDRATION [None]
  - PAIN IN EXTREMITY [None]
  - VOMITING [None]
  - DIARRHOEA [None]
  - MUSCLE SPASMS [None]
  - ERYTHEMA [None]
